FAERS Safety Report 8482691-1 (Version None)
Quarter: 2012Q3

REPORT INFORMATION
  Report Type: 
  Country: None (occurrence: None)
  Receive Date: 20120702
  Receipt Date: 20120628
  Transmission Date: 20120928
  Serious: Yes (Disabling, Other)
  Sender: FDA-Public Use
  Company Number: US-MERCK-1109USA02457

PATIENT
  Age: 38 Year
  Sex: Male
  Weight: 114 kg

DRUGS (3)
  1. PROSCAR [Suspect]
     Indication: ALOPECIA
     Route: 048
     Dates: start: 20040101, end: 20060601
  2. FINASTERIDE [Suspect]
     Indication: ALOPECIA
     Route: 048
     Dates: start: 20060923, end: 20090720
  3. PROPECIA [Suspect]
     Indication: ALOPECIA
     Route: 048
     Dates: start: 20040101, end: 20090720

REACTIONS (30)
  - ERECTILE DYSFUNCTION [None]
  - PALPITATIONS [None]
  - GENITAL HYPOAESTHESIA [None]
  - GROIN PAIN [None]
  - MUSCLE STRAIN [None]
  - OPEN WOUND [None]
  - JOINT INJURY [None]
  - DIVERTICULUM [None]
  - ANXIETY [None]
  - LUMBAR VERTEBRAL FRACTURE [None]
  - INTENTIONAL DRUG MISUSE [None]
  - SCROTAL PAIN [None]
  - VENTRICULAR EXTRASYSTOLES [None]
  - NOCTURIA [None]
  - EPISTAXIS [None]
  - EPIDIDYMAL CYST [None]
  - CHEST WALL MASS [None]
  - LOSS OF LIBIDO [None]
  - TESTICULAR PAIN [None]
  - PENILE PAIN [None]
  - ANGER [None]
  - PROSTATITIS [None]
  - JOINT DISLOCATION [None]
  - COGNITIVE DISORDER [None]
  - COLONIC POLYP [None]
  - WRONG TECHNIQUE IN DRUG USAGE PROCESS [None]
  - ANTISOCIAL BEHAVIOUR [None]
  - DEPRESSION [None]
  - SUICIDAL IDEATION [None]
  - MOOD SWINGS [None]
